FAERS Safety Report 20530795 (Version 7)
Quarter: 2024Q1

REPORT INFORMATION
  Report Type: Spontaneous
  Country: US (occurrence: US)
  Receive Date: 20220301
  Receipt Date: 20240115
  Transmission Date: 20240409
  Serious: Yes (Hospitalization, Disabling, Other)
  Sender: FDA-Public Use
  Company Number: US-ORGANON-O2202USA002309

PATIENT
  Sex: Female
  Weight: 131.3 kg

DRUGS (2)
  1. SINGULAIR [Suspect]
     Active Substance: MONTELUKAST SODIUM
     Indication: Asthma
     Dosage: 1 TABLET, EVERY PM
     Route: 048
     Dates: start: 1994
  2. SINGULAIR [Suspect]
     Active Substance: MONTELUKAST SODIUM
     Indication: Hypersensitivity

REACTIONS (30)
  - Neuropsychological symptoms [Not Recovered/Not Resolved]
  - Umbilical hernia [Unknown]
  - Tonsillectomy [Unknown]
  - Gastric bypass [Unknown]
  - Cholecystectomy [Unknown]
  - Upper gastrointestinal haemorrhage [Unknown]
  - Major depression [Recovering/Resolving]
  - Suicidal ideation [Not Recovered/Not Resolved]
  - Diabetes mellitus [Unknown]
  - Anastomotic ulcer [Unknown]
  - Anastomotic ulcer [Unknown]
  - Panic attack [Not Recovered/Not Resolved]
  - Vitamin B12 deficiency [Unknown]
  - Vitamin D deficiency [Unknown]
  - Hypovitaminosis [Unknown]
  - Zinc metabolism disorder [Unknown]
  - Copper metabolism disorder [Unknown]
  - Mineral metabolism disorder [Unknown]
  - Obesity [Unknown]
  - Mixed anxiety and depressive disorder [Unknown]
  - Migraine [Unknown]
  - Gastrooesophageal reflux disease [Unknown]
  - Gastrooesophageal reflux disease [Unknown]
  - Constipation [Recovering/Resolving]
  - Malabsorption [Unknown]
  - Malabsorption [Unknown]
  - Arthralgia [Unknown]
  - Sleep apnoea syndrome [Unknown]
  - Weight increased [Unknown]
  - Anaemia [Unknown]

NARRATIVE: CASE EVENT DATE: 19950101
